FAERS Safety Report 7262812-9 (Version None)
Quarter: 2011Q1

REPORT INFORMATION
  Report Type: 
  Country: None (occurrence: None)
  Receive Date: 20110130
  Receipt Date: 20101008
  Transmission Date: 20110831
  Serious: No
  Sender: FDA-Public Use
  Company Number: US-ABBOTT-10P-163-0670657-00

PATIENT
  Age: 77 Year
  Sex: Female

DRUGS (9)
  1. INDERAL [Concomitant]
     Indication: PRODUCT USED FOR UNKNOWN INDICATION
  2. CALCIUM [Concomitant]
     Indication: PRODUCT USED FOR UNKNOWN INDICATION
  3. DETROL LA [Concomitant]
     Indication: PRODUCT USED FOR UNKNOWN INDICATION
  4. SORATINE [Concomitant]
     Indication: PRODUCT USED FOR UNKNOWN INDICATION
  5. MULTI-VITAMIN [Concomitant]
     Indication: PRODUCT USED FOR UNKNOWN INDICATION
  6. MAXZIDE [Concomitant]
     Indication: PRODUCT USED FOR UNKNOWN INDICATION
  7. LOTREL [Concomitant]
     Indication: PRODUCT USED FOR UNKNOWN INDICATION
  8. ZOCOR [Concomitant]
     Indication: PRODUCT USED FOR UNKNOWN INDICATION
  9. HUMIRA [Suspect]
     Indication: PSORIASIS
     Dates: start: 20100823

REACTIONS (2)
  - INJECTION SITE PAIN [None]
  - DRUG INEFFECTIVE [None]
